FAERS Safety Report 7942272-2 (Version None)
Quarter: 2011Q4

REPORT INFORMATION
  Report Type: 
  Country: None (occurrence: None)
  Receive Date: 20111122
  Receipt Date: 20110623
  Transmission Date: 20120403
  Serious: Yes (Other)
  Sender: FDA-Public Use
  Company Number: PHHY2011US58045

PATIENT

DRUGS (1)
  1. GILENYA [Suspect]
     Dosage: , ORAL
     Route: 048

REACTIONS (2)
  - ORAL HERPES [None]
  - GENITAL HERPES [None]
